FAERS Safety Report 25986761 (Version 1)
Quarter: 2025Q4

REPORT INFORMATION
  Report Type: Spontaneous
  Country: CN (occurrence: CN)
  Receive Date: 20251102
  Receipt Date: 20251102
  Transmission Date: 20260119
  Serious: Yes (Other)
  Sender: SANOFI AVENTIS
  Company Number: CN-SA-2025SA320148

PATIENT
  Age: 76 Year
  Sex: Male
  Weight: 54 kg

DRUGS (1)
  1. ZOLPIDEM TARTRATE [Suspect]
     Active Substance: ZOLPIDEM TARTRATE
     Indication: Sleep disorder
     Dosage: 5 MG, HS
     Route: 048
     Dates: start: 20251019, end: 20251021

REACTIONS (4)
  - Urinary retention [Recovering/Resolving]
  - Urine output decreased [Recovering/Resolving]
  - Bladder dilatation [Recovering/Resolving]
  - Dysuria [Recovering/Resolving]

NARRATIVE: CASE EVENT DATE: 20251021
